FAERS Safety Report 9824482 (Version 2)
Quarter: 2014Q1

REPORT INFORMATION
  Report Type: Spontaneous
  Country: US (occurrence: US)
  Receive Date: 20140116
  Receipt Date: 20140116
  Transmission Date: 20141002
  Serious: No
  Sender: FDA-Public Use
  Company Number: US-GILEAD-2011-0039793

PATIENT
  Age: 72 Year
  Sex: Male

DRUGS (2)
  1. LETAIRIS [Suspect]
     Indication: PULMONARY HYPERTENSION
     Route: 048
     Dates: start: 20110314, end: 20110606
  2. LETAIRIS [Suspect]
     Indication: CONNECTIVE TISSUE DISORDER
     Route: 048
     Dates: start: 20110314, end: 20110524

REACTIONS (3)
  - Arthralgia [Recovered/Resolved]
  - Urticaria [Not Recovered/Not Resolved]
  - Oedema [Not Recovered/Not Resolved]
